FAERS Safety Report 18309584 (Version 2)
Quarter: 2020Q4

REPORT INFORMATION
  Report Type: Report from Study
  Country: US (occurrence: US)
  Receive Date: 20200925
  Receipt Date: 20201123
  Transmission Date: 20210113
  Serious: No
  Sender: FDA-Public Use
  Company Number: NVSC2020US258970

PATIENT
  Sex: Male

DRUGS (1)
  1. COSENTYX [Suspect]
     Active Substance: SECUKINUMAB
     Indication: PSORIASIS
     Dosage: 300 MG (ONCE A WEEK FOR 5 WEEKS AND THEN Q 4)
     Route: 058
     Dates: start: 202003

REACTIONS (1)
  - Psoriasis [Recovering/Resolving]
